FAERS Safety Report 11204363 (Version 1)
Quarter: 2015Q2

REPORT INFORMATION
  Report Type: Spontaneous
  Country: US (occurrence: US)
  Receive Date: 20150620
  Receipt Date: 20150620
  Transmission Date: 20150821
  Serious: No
  Sender: FDA-Public Use
  Company Number: US-009507513-1506USA004155

PATIENT
  Age: 17 Year
  Sex: Female
  Weight: 88.44 kg

DRUGS (1)
  1. NEXPLANON [Suspect]
     Active Substance: ETONOGESTREL
     Indication: CONTRACEPTION
     Dosage: UNK (3 YEAR IMPLANT), LEFT ARM
     Route: 059
     Dates: start: 20150320

REACTIONS (1)
  - Vaginal haemorrhage [Unknown]

NARRATIVE: CASE EVENT DATE: 20150327
